FAERS Safety Report 7458325-1 (Version None)
Quarter: 2011Q2

REPORT INFORMATION
  Report Type: 
  Country: None (occurrence: None)
  Receive Date: 20110504
  Receipt Date: 20110428
  Transmission Date: 20111010
  Serious: Yes (Hospitalization, Other)
  Sender: FDA-Public Use
  Company Number: DK-ROXANE LABORATORIES, INC.-2011-RO-00592RO

PATIENT
  Age: 65 Year
  Sex: Male
  Weight: 113 kg

DRUGS (5)
  1. FUROSEMIDE [Suspect]
     Indication: DIURETIC THERAPY
     Dosage: 1500 MG
     Route: 048
  2. SPIRONOLACTONE [Suspect]
     Indication: MYOCARDIAL INFARCTION
     Dosage: 50 MG
  3. FUROSEMIDE [Suspect]
     Indication: MYOCARDIAL INFARCTION
     Dosage: 320 MG
     Route: 048
  4. BENDROFLUMETHIAZID [Suspect]
     Indication: MYOCARDIAL INFARCTION
     Dosage: 2.5 MG
  5. METOPROLOL [Suspect]
     Indication: MYOCARDIAL INFARCTION
     Dosage: 150 MG

REACTIONS (2)
  - RENAL FAILURE ACUTE [None]
  - WEIGHT INCREASED [None]
